FAERS Safety Report 9934322 (Version 1)
Quarter: 2014Q1

REPORT INFORMATION
  Report Type: Spontaneous
  Country: IE (occurrence: IE)
  Receive Date: 20140228
  Receipt Date: 20140228
  Transmission Date: 20141002
  Serious: Yes (Hospitalization, Disabling)
  Sender: FDA-Public Use
  Company Number: PHHY2014IE021903

PATIENT
  Age: 10 Year
  Sex: 0
  Weight: 52 kg

DRUGS (3)
  1. EXJADE [Suspect]
     Indication: SICKLE CELL ANAEMIA
     Dosage: 1125 MG, 1 IN 1 D
     Route: 048
     Dates: start: 201205
  2. FOLIC ACID [Concomitant]
     Indication: SICKLE CELL ANAEMIA
     Dosage: UNK UKN, UNK
  3. CALVEPEN [Concomitant]
     Indication: SICKLE CELL ANAEMIA
     Dosage: 333 MG, 2 IN 1 D

REACTIONS (10)
  - Renal failure [Not Recovered/Not Resolved]
  - Renal impairment [Not Recovered/Not Resolved]
  - Gastroenteritis viral [Not Recovered/Not Resolved]
  - Abdominal pain [Not Recovered/Not Resolved]
  - Diarrhoea [Not Recovered/Not Resolved]
  - Dehydration [Not Recovered/Not Resolved]
  - Hypertension [Not Recovered/Not Resolved]
  - Convulsion [Not Recovered/Not Resolved]
  - Brain injury [Not Recovered/Not Resolved]
  - Sickle cell anaemia with crisis [Not Recovered/Not Resolved]
